FAERS Safety Report 17636298 (Version 1)
Quarter: 2020Q2

REPORT INFORMATION
  Report Type: Spontaneous
  Country: JP (occurrence: JP)
  Receive Date: 20200407
  Receipt Date: 20200407
  Transmission Date: 20200713
  Serious: Yes (Hospitalization)
  Sender: FDA-Public Use
  Company Number: NVSJ2020JP004075

PATIENT

DRUGS (3)
  1. EQUA TAB [Suspect]
     Active Substance: VILDAGLIPTIN
     Dosage: 50 MG, QD
     Route: 048
  2. EQUMET [Suspect]
     Active Substance: METFORMIN HYDROCHLORIDE\VILDAGLIPTIN
     Indication: PRODUCT USED FOR UNKNOWN INDICATION
     Dosage: 1 DF(METFORMIN 500MG, VILDAGLIPTIN 50MG), BID
     Route: 048
  3. EQUA TAB [Suspect]
     Active Substance: VILDAGLIPTIN
     Indication: PRODUCT USED FOR UNKNOWN INDICATION
     Dosage: 50 MG, BID
     Route: 048

REACTIONS (2)
  - Diabetes mellitus inadequate control [Unknown]
  - Overdose [Unknown]
